FAERS Safety Report 18134033 (Version 1)
Quarter: 2020Q3

REPORT INFORMATION
  Report Type: Spontaneous
  Country: US (occurrence: US)
  Receive Date: 20200807
  Receipt Date: 20200807
  Transmission Date: 20201103
  Serious: No
  Sender: FDA-Public Use
  Company Number: None

PATIENT
  Age: 59 Year
  Sex: Male

DRUGS (1)
  1. SUTENT [Suspect]
     Active Substance: SUNITINIB MALATE
     Route: 048
     Dates: start: 202004

REACTIONS (5)
  - Inappropriate schedule of product administration [None]
  - Insomnia [None]
  - Depression [None]
  - Graft complication [None]
  - Anxiety [None]

NARRATIVE: CASE EVENT DATE: 20200720
